FAERS Safety Report 4665123-0 (Version None)
Quarter: 2005Q2

REPORT INFORMATION
  Report Type: 
  Country: None (occurrence: None)
  Receive Date: 20050517
  Receipt Date: 20050504
  Transmission Date: 20051028
  Serious: Yes (Hospitalization)
  Sender: FDA-Public Use
  Company Number: 2005071188

PATIENT
  Age: 42 Year
  Sex: Male

DRUGS (12)
  1. PREDNISONE [Suspect]
     Indication: ILL-DEFINED DISORDER
     Dosage: 30 MG (30 MG, 1 IN 1 D), ORAL
     Route: 048
  2. ASPIRIN [Suspect]
     Indication: BEHCET'S SYNDROME
     Dosage: 75 MG (75 MG, 1 IN 1 D), ORAL
     Route: 048
     Dates: start: 20050404, end: 20050418
  3. MYCOPHENOLIC ACID [Suspect]
     Indication: BEHCET'S SYNDROME
     Dosage: 1 GRAM (1 GRAM, 2 IN 1 D), ORAL
     Route: 048
     Dates: start: 20031101, end: 20050418
  4. ALENDRONATE SODIUM [Concomitant]
  5. NIFEDIPINE [Concomitant]
  6. DOTHIEPIN HYDROCHLORIDE [Concomitant]
  7. LANSOPRAZOLE [Concomitant]
  8. BENDROFLUMETHIAZIDE (BENDROFLUMETHIAZIDE) [Concomitant]
  9. LAMOTRIGINE [Concomitant]
  10. DOXAZOSIN (DOXAZOSIN) [Concomitant]
  11. TRAMADOL HCL [Concomitant]
  12. PERINDOPRIL (PERINDOPRIL) [Concomitant]

REACTIONS (7)
  - ABDOMINAL PAIN [None]
  - DIARRHOEA HAEMORRHAGIC [None]
  - GASTRITIS [None]
  - GASTROINTESTINAL HAEMORRHAGE [None]
  - NAUSEA [None]
  - RECTAL HAEMORRHAGE [None]
  - VOMITING [None]
